FAERS Safety Report 9974082 (Version 1)
Quarter: 2014Q1

REPORT INFORMATION
  Report Type: Report from Study
  Country: US (occurrence: US)
  Receive Date: 20140306
  Receipt Date: 20140306
  Transmission Date: 20141002
  Serious: No
  Sender: FDA-Public Use
  Company Number: US-ABBVIE-13P-163-1157893-00

PATIENT
  Age: 29 Year
  Sex: Female
  Weight: 83.54 kg

DRUGS (2)
  1. HUMIRA [Suspect]
     Indication: CROHN^S DISEASE
     Dates: start: 20131014
  2. ZOLOFT [Concomitant]
     Indication: ANXIETY

REACTIONS (1)
  - Drug administered at inappropriate site [Not Recovered/Not Resolved]
